FAERS Safety Report 21871963 (Version 1)
Quarter: 2023Q1

REPORT INFORMATION
  Report Type: Spontaneous
  Country: GB (occurrence: GB)
  Receive Date: 20230117
  Receipt Date: 20230117
  Transmission Date: 20230418
  Serious: Yes (Disabling, Other)
  Sender: FDA-Public Use
  Company Number: GB-MYLANLABS-2022M1141559

PATIENT
  Age: 68 Year
  Sex: Male

DRUGS (3)
  1. BRIMONIDINE [Suspect]
     Active Substance: BRIMONIDINE TARTRATE
     Indication: Open angle glaucoma
     Dosage: UNK, BID   (0.2% TWICE DAILY)
     Route: 065
  2. BRINZOLAMIDE\TIMOLOL [Suspect]
     Active Substance: BRINZOLAMIDE\TIMOLOL
     Indication: Open angle glaucoma
     Dosage: UNK, BID ((0.1%/0.5%) TWICE DAILY)
     Route: 065
  3. TRAVOPROST [Suspect]
     Active Substance: TRAVOPROST
     Indication: Open angle glaucoma
     Dosage: UNK, QD (0.004% (ONCE DAILY)
     Route: 065

REACTIONS (5)
  - Punctate keratitis [Recovering/Resolving]
  - Keratopathy [Recovering/Resolving]
  - Visual field defect [Unknown]
  - Conjunctival hyperaemia [Recovering/Resolving]
  - Tear break up time decreased [Unknown]
